FAERS Safety Report 4715263-2 (Version None)
Quarter: 2005Q3

REPORT INFORMATION
  Report Type: 
  Country: None (occurrence: None)
  Receive Date: 20050715
  Receipt Date: 20050315
  Transmission Date: 20060218
  Serious: Yes (Hospitalization)
  Sender: FDA-Public Use
  Company Number: 2005AP01913

PATIENT
  Age: 25641 Day
  Sex: Male
  Weight: 63 kg

DRUGS (1)
  1. IRESSA [Suspect]
     Indication: NON-SMALL CELL LUNG CANCER
     Route: 048
     Dates: start: 20050126, end: 20050227

REACTIONS (5)
  - ERYTHEMA [None]
  - HAEMATURIA [None]
  - PURPURA [None]
  - SKIN NECROSIS [None]
  - SKIN ULCER [None]
